FAERS Safety Report 15800370 (Version 1)
Quarter: 2019Q1

REPORT INFORMATION
  Report Type: Spontaneous
  Country: US (occurrence: US)
  Receive Date: 20190108
  Receipt Date: 20190108
  Transmission Date: 20190417
  Serious: Yes (Other)
  Sender: FDA-Public Use
  Company Number: PHHY2018US199667

PATIENT
  Age: 12 Year
  Sex: Male

DRUGS (1)
  1. GLEEVEC [Suspect]
     Active Substance: IMATINIB MESYLATE
     Indication: ACUTE LYMPHOCYTIC LEUKAEMIA
     Dosage: 1 DF, UNK
     Route: 065
     Dates: start: 20121207

REACTIONS (10)
  - Lumbar puncture [Unknown]
  - Fatigue [Unknown]
  - Vomiting [Unknown]
  - Pain in extremity [Unknown]
  - Minimal residual disease [Unknown]
  - Bone marrow disorder [Unknown]
  - Leukaemia recurrent [Unknown]
  - Nausea [Unknown]
  - Blast cells present [Unknown]
  - Headache [Unknown]

NARRATIVE: CASE EVENT DATE: 20161024
